FAERS Safety Report 21162336 (Version 1)
Quarter: 2022Q3

REPORT INFORMATION
  Report Type: Spontaneous
  Country: US (occurrence: US)
  Receive Date: 20220802
  Receipt Date: 20220802
  Transmission Date: 20221027
  Serious: No
  Sender: FDA-Public Use
  Company Number: US-PFIZER INC-202201017843

PATIENT
  Age: 81 Year
  Sex: Female
  Weight: 45.81 kg

DRUGS (2)
  1. PAXLOVID [Suspect]
     Active Substance: NIRMATRELVIR\RITONAVIR
     Indication: COVID-19 treatment
     Dosage: 3 DF (3 TABLETS BY MOUTH TAKEN)
     Route: 048
     Dates: start: 20220727
  2. PRALUENT [Suspect]
     Active Substance: ALIROCUMAB
     Indication: Blood cholesterol
     Dosage: UNK (INJECTION ADMINISTERED EVERY 2 WEEKS )

REACTIONS (1)
  - Product prescribing issue [Unknown]
